FAERS Safety Report 16971535 (Version 1)
Quarter: 2019Q4

REPORT INFORMATION
  Report Type: Spontaneous
  Country: US (occurrence: US)
  Receive Date: 20190912
  Receipt Date: 20190912
  Transmission Date: 20200122
  Serious: No
  Sender: FDA-Public Use
  Company Number: None

PATIENT
  Age: 65 Year
  Sex: Male

DRUGS (4)
  1. VASCEPA [Concomitant]
     Active Substance: ICOSAPENT ETHYL
  2. TACROLIMUS. [Concomitant]
     Active Substance: TACROLIMUS
  3. PRAVASTATIN. [Concomitant]
     Active Substance: PRAVASTATIN
  4. MYCOPHENOLATE MOFETIL CAP 250MG [Suspect]
     Active Substance: MYCOPHENOLATE MOFETIL
     Indication: LIVER TRANSPLANT
     Route: 048
     Dates: start: 201812

REACTIONS (1)
  - Cardiac disorder [None]

NARRATIVE: CASE EVENT DATE: 20190912
